FAERS Safety Report 17650700 (Version 1)
Quarter: 2020Q2

REPORT INFORMATION
  Report Type: Spontaneous
  Country: DE (occurrence: DE)
  Receive Date: 20200409
  Receipt Date: 20200409
  Transmission Date: 20200713
  Serious: Yes (Other)
  Sender: FDA-Public Use
  Company Number: DE-BAYER-2020-052707

PATIENT
  Age: 33 Year
  Sex: Female
  Weight: 47 kg

DRUGS (1)
  1. GADOVIST [Suspect]
     Active Substance: GADOBUTROL
     Indication: MAGNETIC RESONANCE IMAGING
     Dosage: UNKNOWN
     Route: 042
     Dates: start: 20181114, end: 20181114

REACTIONS (42)
  - Myalgia [Recovered/Resolved with Sequelae]
  - Paraesthesia [Not Recovered/Not Resolved]
  - Vertigo [Recovered/Resolved with Sequelae]
  - Hormone level abnormal [Not Recovered/Not Resolved]
  - Bone pain [Recovered/Resolved with Sequelae]
  - Drug level increased [Recovered/Resolved with Sequelae]
  - General physical health deterioration [Unknown]
  - Weight decreased [Recovered/Resolved with Sequelae]
  - Incontinence [Recovered/Resolved with Sequelae]
  - Hypersensitivity [Recovered/Resolved with Sequelae]
  - Hypoaesthesia [Not Recovered/Not Resolved]
  - Dyskinesia [Recovered/Resolved with Sequelae]
  - Pain in extremity [Recovered/Resolved with Sequelae]
  - Visual impairment [Recovered/Resolved with Sequelae]
  - Amnesia [Not Recovered/Not Resolved]
  - Muscle discomfort [Recovered/Resolved with Sequelae]
  - Eye inflammation [Recovered/Resolved with Sequelae]
  - Ocular hyperaemia [Unknown]
  - Decreased appetite [Recovered/Resolved with Sequelae]
  - Dysgeusia [Recovered/Resolved with Sequelae]
  - Swelling [Unknown]
  - Dyspepsia [Unknown]
  - Pain of skin [Recovered/Resolved with Sequelae]
  - Food intolerance [Recovered/Resolved with Sequelae]
  - Alopecia [Recovering/Resolving]
  - Paraesthesia [Recovered/Resolved]
  - Skin discomfort [Recovered/Resolved with Sequelae]
  - Disturbance in attention [Recovered/Resolved with Sequelae]
  - Vision blurred [Unknown]
  - Leiomyoma [Recovered/Resolved with Sequelae]
  - Memory impairment [Not Recovered/Not Resolved]
  - Arthropathy [Recovered/Resolved with Sequelae]
  - Abdominal distension [Recovered/Resolved with Sequelae]
  - Visual impairment [Recovered/Resolved with Sequelae]
  - Gait disturbance [Recovered/Resolved with Sequelae]
  - Photophobia [Recovered/Resolved with Sequelae]
  - Contrast media toxicity [Unknown]
  - Cataract [Recovered/Resolved with Sequelae]
  - Rash macular [Unknown]
  - Disorientation [Recovered/Resolved with Sequelae]
  - Muscular weakness [Recovered/Resolved with Sequelae]
  - Headache [Recovered/Resolved with Sequelae]

NARRATIVE: CASE EVENT DATE: 20181114
